FAERS Safety Report 6490056-7 (Version None)
Quarter: 2009Q4

REPORT INFORMATION
  Report Type: 
  Country: None (occurrence: None)
  Receive Date: 20091211
  Receipt Date: 20091208
  Transmission Date: 20100525
  Serious: Yes (Death)
  Sender: FDA-Public Use
  Company Number: PHHY2009JP54345

PATIENT
  Sex: Male

DRUGS (2)
  1. DIOVAN [Suspect]
     Indication: HYPERTENSION
     Route: 048
  2. NATEGLINIDE [Concomitant]
     Dosage: 270 MG, UNK
     Route: 048
     Dates: start: 20080125, end: 20090702

REACTIONS (1)
  - OESOPHAGEAL CARCINOMA [None]
